FAERS Safety Report 13346922 (Version 1)
Quarter: 2017Q1

REPORT INFORMATION
  Report Type: Spontaneous
  Country: US (occurrence: US)
  Receive Date: 20170317
  Receipt Date: 20170317
  Transmission Date: 20170428
  Serious: No
  Sender: FDA-Public Use
  Company Number: US-PERRIGO-16US019764

PATIENT
  Age: 46 Year
  Sex: Male
  Weight: 79.37 kg

DRUGS (2)
  1. NICOTINE POLACRILEX [Suspect]
     Active Substance: NICOTINE
     Indication: SMOKING CESSATION THERAPY
     Dosage: 4 MG, EVERY 1 TO 2 HOURS, 15 TIMES DAILY
     Route: 002
     Dates: start: 2011
  2. NICOTINE POLACRILEX [Suspect]
     Active Substance: NICOTINE
     Indication: DEPENDENCE
     Dosage: 4 MG, EVERY 1 TO 2 HOURS, 15 TIMES A DAY
     Route: 002

REACTIONS (3)
  - Nicotine dependence [Not Recovered/Not Resolved]
  - Incorrect drug administration duration [Not Recovered/Not Resolved]
  - Blood glucose increased [Not Recovered/Not Resolved]

NARRATIVE: CASE EVENT DATE: 2011
